FAERS Safety Report 4280078-9 (Version None)
Quarter: 2004Q1

REPORT INFORMATION
  Report Type: 
  Country: None (occurrence: None)
  Receive Date: 20040126
  Receipt Date: 20040112
  Transmission Date: 20041129
  Serious: Yes (Disabling)
  Sender: FDA-Public Use
  Company Number: 2003186294GB

PATIENT
  Sex: Female

DRUGS (1)
  1. DEPO-PROVERA [Suspect]
     Indication: CONTRACEPTION
     Dosage: LAST INJECTION, INTRAMUSCULAR
     Route: 030
     Dates: start: 20031201, end: 20031201

REACTIONS (3)
  - CONDITION AGGRAVATED [None]
  - FIBROMYALGIA [None]
  - PELVIC PAIN [None]
